FAERS Safety Report 21918124 (Version 2)
Quarter: 2023Q1

REPORT INFORMATION
  Report Type: Report from Study
  Country: US (occurrence: US)
  Receive Date: 20230127
  Receipt Date: 20230216
  Transmission Date: 20230417
  Serious: Yes (Death, Other)
  Sender: FDA-Public Use
  Company Number: US-ACADIA PHARMACEUTICALS INC.-ACA-2022-PIM-002729

PATIENT
  Sex: Female
  Weight: 39 kg

DRUGS (15)
  1. NUPLAZID [Suspect]
     Active Substance: PIMAVANSERIN TARTRATE
     Indication: Parkinson^s disease
     Dosage: 34 MILLIGRAM, QD
     Route: 048
     Dates: start: 20220201
  2. NUPLAZID [Suspect]
     Active Substance: PIMAVANSERIN TARTRATE
     Dosage: 34 MILLIGRAM, QD
     Route: 048
     Dates: end: 20230115
  3. SYSTANE ULTRA [Concomitant]
     Active Substance: POLYETHYLENE GLYCOL 400\PROPYLENE GLYCOL
  4. ATROPINE [Concomitant]
     Active Substance: ATROPINE
     Indication: Salivary hypersecretion
     Dosage: 2 DROPS EVERY 6 HOURS AS NEEDED
     Route: 047
  5. ATROPINE [Concomitant]
     Active Substance: ATROPINE
     Dosage: ADMINISTER UNDER THE TONGUE FOR SIALORRHEA
  6. RYTARY [Concomitant]
     Active Substance: CARBIDOPA\LEVODOPA
     Dosage: 61.25-245 MG, 1 CAPSULE FOUR TIMES DAILY
  7. VITAMIN D3 [Concomitant]
     Active Substance: CHOLECALCIFEROL
     Dosage: TAKE 6000 UNITS
     Route: 048
  8. COENZYME Q10 [Concomitant]
     Active Substance: DIETARY SUPPLEMENT\UBIDECARENONE
     Dosage: 200 MILLIGRAM
     Route: 048
  9. VITAMIN B12 [Concomitant]
     Active Substance: CYANOCOBALAMIN
     Route: 048
  10. NEXIUM I.V. [Concomitant]
     Active Substance: ESOMEPRAZOLE SODIUM
     Dosage: 40 MILLIGRAM, QD
     Route: 048
  11. LEVOTHYROXINE SODIUM [Concomitant]
     Active Substance: LEVOTHYROXINE SODIUM
     Dosage: 25 MICROGRAM
     Route: 048
  12. NITROSTAT [Concomitant]
     Active Substance: NITROGLYCERIN
     Indication: Angina pectoris
     Dosage: 0.4 MG, PLACE 1 TABLET UNDER TONGUE FOR ANGINA/CHEST PAIN, REPEAT 5 MINUTES FOR A TOTAL OF THREE PIL
  13. NITROSTAT [Concomitant]
     Active Substance: NITROGLYCERIN
     Indication: Chest pain
  14. SEROQUEL [Concomitant]
     Active Substance: QUETIAPINE FUMARATE
     Dosage: 100MG, TAKE 2 TABLETS AT BEDTIME
     Route: 048
  15. EXELON [Concomitant]
     Active Substance: RIVASTIGMINE TARTRATE
     Dosage: 13.3 MG/24 HR, PLACE 1 PATCH ONTO THE SKIN EVERY MORNING

REACTIONS (3)
  - Parkinson^s disease [Fatal]
  - Transient ischaemic attack [Fatal]
  - Product dose omission issue [Not Recovered/Not Resolved]
